FAERS Safety Report 5519310-X (Version None)
Quarter: 2007Q4

REPORT INFORMATION
  Report Type: 
  Country: None (occurrence: None)
  Receive Date: 20071116
  Receipt Date: 20071109
  Transmission Date: 20080405
  Serious: Yes (Hospitalization)
  Sender: FDA-Public Use
  Company Number: US-GENENTECH-233614

PATIENT
  Sex: Female

DRUGS (13)
  1. BEVACIZUMAB [Suspect]
     Indication: BREAST CANCER
     Dosage: 710 MG, UNK
     Route: 042
     Dates: start: 20060925, end: 20061106
  2. ADRIAMYCIN PFS [Suspect]
     Indication: BREAST CANCER
     Dosage: 105 MG, UNK
     Route: 042
     Dates: start: 20060925, end: 20061106
  3. CYTOXAN [Suspect]
     Indication: BREAST CANCER
     Dosage: 1050 MG, UNK
     Route: 042
     Dates: start: 20060925, end: 20061106
  4. STUDY DRUGS NOS [Suspect]
     Indication: BREAST CANCER
     Dosage: 436 MG, UNK
     Route: 042
     Dates: start: 20061120, end: 20061120
  5. PEGFILGRASTIM [Suspect]
     Indication: PROPHYLAXIS
     Dosage: 6 MG, UNK
     Route: 042
     Dates: start: 20060926
  6. LIPITOR [Concomitant]
     Indication: HYPERCHOLESTEROLAEMIA
     Dosage: 10 MG, UNK
     Route: 048
     Dates: start: 20030101
  7. CELEBREX [Concomitant]
     Indication: ARTHRITIS
     Dosage: 200 MG, UNK
     Route: 048
     Dates: start: 20020101
  8. COZAAR [Concomitant]
     Indication: HYPERTENSION
     Dosage: 100 MG, UNK
     Route: 048
     Dates: start: 20020101
  9. HYDROCHLOROTHIAZIDE [Concomitant]
     Indication: HYPERTENSION
     Dates: start: 20040101
  10. EFFEXOR [Concomitant]
     Indication: HOT FLUSH
     Dosage: 37.5 MG, UNK
     Route: 048
     Dates: start: 20061009
  11. EMEND [Concomitant]
     Indication: VOMITING
     Route: 048
     Dates: start: 20060925
  12. COMPAZINE [Concomitant]
     Indication: DRUG USE FOR UNKNOWN INDICATION
     Dosage: 10 MG, UNK
     Dates: start: 20060925
  13. PACLITAXEL [Suspect]
     Indication: BREAST CANCER
     Dosage: 436 MG, UNK
     Route: 042
     Dates: start: 20061120, end: 20061129

REACTIONS (1)
  - HYPOVOLAEMIA [None]
